FAERS Safety Report 7267369-4 (Version None)
Quarter: 2011Q1

REPORT INFORMATION
  Report Type: 
  Country: None (occurrence: None)
  Receive Date: 20110201
  Receipt Date: 20100714
  Transmission Date: 20110831
  Serious: No
  Sender: FDA-Public Use
  Company Number: A0870448A

PATIENT
  Age: 45 Year
  Sex: Female

DRUGS (3)
  1. ARIXTRA [Suspect]
     Indication: FACTOR V LEIDEN MUTATION
     Dosage: 2.5MG PER DAY
     Route: 058
     Dates: start: 20100301
  2. ESTRADIOL [Concomitant]
  3. LUPRON [Concomitant]

REACTIONS (2)
  - INJECTION SITE PAIN [None]
  - INJECTION SITE HAEMATOMA [None]
